FAERS Safety Report 8182412-6 (Version None)
Quarter: 2012Q1

REPORT INFORMATION
  Report Type: 
  Country: None (occurrence: None)
  Receive Date: 20120304
  Receipt Date: 20120229
  Transmission Date: 20120608
  Serious: Yes (Hospitalization)
  Sender: FDA-Public Use
  Company Number: US-ABBOTT-12P-163-0910034-00

PATIENT
  Sex: Female
  Weight: 62.198 kg

DRUGS (4)
  1. BLOOD PRESSURE MEDICATION [Concomitant]
     Indication: PRODUCT USED FOR UNKNOWN INDICATION
  2. OMEPRAZOLE [Concomitant]
     Indication: GASTRIC DISORDER
  3. NIASPAN [Suspect]
     Indication: CORONARY ARTERY DISEASE
     Dosage: AT BEDTIME
  4. UNKNOWN MEDICATIONS [Concomitant]
     Indication: PRODUCT USED FOR UNKNOWN INDICATION

REACTIONS (5)
  - MYOCARDIAL INFARCTION [None]
  - CLOSTRIDIUM DIFFICILE COLITIS [None]
  - ILL-DEFINED DISORDER [None]
  - ANTIBIOTIC THERAPY [None]
  - GASTRIC DISORDER [None]
